FAERS Safety Report 19040538 (Version 1)
Quarter: 2021Q1

REPORT INFORMATION
  Report Type: Spontaneous
  Country: FR (occurrence: FR)
  Receive Date: 20210323
  Receipt Date: 20210323
  Transmission Date: 20210420
  Serious: Yes (Other)
  Sender: FDA-Public Use
  Company Number: FR-LUPIN PHARMACEUTICALS INC.-2021-03555

PATIENT
  Age: 43 Year
  Sex: Male

DRUGS (8)
  1. ESCITALOPRAM [Suspect]
     Active Substance: ESCITALOPRAM OXALATE
     Dosage: 20 MILLIGRAM, QD
     Route: 065
     Dates: start: 201609
  2. OLANZAPINE. [Suspect]
     Active Substance: OLANZAPINE
     Indication: PRODUCT USED FOR UNKNOWN INDICATION
     Dosage: 7.5 MILLIGRAM, QD
     Route: 065
     Dates: start: 201512, end: 201602
  3. RISPERIDONE. [Concomitant]
     Active Substance: RISPERIDONE
     Indication: PRODUCT USED FOR UNKNOWN INDICATION
     Dosage: UNK UNK, QD ( 1?3 MG/DAY)
     Route: 065
     Dates: start: 201602
  4. ESCITALOPRAM [Suspect]
     Active Substance: ESCITALOPRAM OXALATE
     Indication: PRODUCT USED FOR UNKNOWN INDICATION
     Dosage: 10 MILLIGRAM, QD
     Route: 065
     Dates: start: 201602
  5. PALIPERIDONE. [Concomitant]
     Active Substance: PALIPERIDONE
     Dosage: 100 MILLIGRAM, MONTH
     Route: 065
     Dates: start: 201610
  6. PALIPERIDONE. [Concomitant]
     Active Substance: PALIPERIDONE
     Dosage: 125 MILLIGRAM, MONTH
     Route: 065
     Dates: start: 201709
  7. PALIPERIDONE. [Concomitant]
     Active Substance: PALIPERIDONE
     Indication: PRODUCT USED FOR UNKNOWN INDICATION
     Dosage: 75 MILLIGRAM, MONTH
     Route: 065
     Dates: start: 201609
  8. ESCITALOPRAM [Suspect]
     Active Substance: ESCITALOPRAM OXALATE
     Dosage: 20 MILLIGRAM, QD
     Route: 065
     Dates: start: 201709

REACTIONS (3)
  - Drug ineffective [Unknown]
  - Writer^s cramp [Unknown]
  - Sensorimotor disorder [Unknown]
